FAERS Safety Report 10423633 (Version 1)
Quarter: 2014Q3

REPORT INFORMATION
  Report Type: Spontaneous
  Country: US (occurrence: None)
  Receive Date: 20140722
  Receipt Date: 20140722
  Transmission Date: 20150326
  Serious: No
  Sender: FDA-Public Use
  Company Number: 163-10004-14062218

PATIENT
  Age: 36 Year
  Sex: Female

DRUGS (6)
  1. OTEZLA [Suspect]
     Active Substance: APREMILAST
     Indication: PSORIATIC ARTHROPATHY
     Route: 048
     Dates: start: 20140422
  2. MTX(METHOTREXATE SODIUM)(UNKNOWN) [Concomitant]
  3. CYMBALTA(DULOXETINE HYDROCHLORIDE)(UNKNOWN) [Concomitant]
  4. PHENERGAN(PROMETHAZINE HYDROCHLORIDE)(UNKNOWN) [Concomitant]
  5. TRAMADOL(TRAMADOL)(UNKNOWN) [Concomitant]
  6. LEFLUNOMIDE(LEFLUNOMIDE)(UNKNOWN) [Concomitant]

REACTIONS (2)
  - Diarrhoea [None]
  - Malaise [None]

NARRATIVE: CASE EVENT DATE: 2014
